FAERS Safety Report 25581276 (Version 1)
Quarter: 2025Q3

REPORT INFORMATION
  Report Type: Spontaneous
  Country: GB (occurrence: GB)
  Receive Date: 20250718
  Receipt Date: 20250718
  Transmission Date: 20251021
  Serious: Yes (Other)
  Sender: AUROBINDO
  Company Number: GB-MHRA-MED-202507041854128480-JBGPF

PATIENT
  Sex: Male
  Weight: 85 kg

DRUGS (2)
  1. TADALAFIL [Suspect]
     Active Substance: TADALAFIL
     Indication: Radical prostatectomy
     Dosage: 5 MILLIGRAM, ONCE A DAY
     Route: 065
     Dates: start: 20250528, end: 20250528
  2. TADALAFIL [Concomitant]
     Active Substance: TADALAFIL
     Indication: Radical prostatectomy
     Route: 065
     Dates: start: 20250606, end: 20250608

REACTIONS (2)
  - Loss of consciousness [Unknown]
  - Hypotension [Recovered/Resolved with Sequelae]

NARRATIVE: CASE EVENT DATE: 20250528
